FAERS Safety Report 8607555-1 (Version None)
Quarter: 2012Q3

REPORT INFORMATION
  Report Type: 
  Country: None (occurrence: None)
  Receive Date: 20120821
  Receipt Date: 20120809
  Transmission Date: 20120928
  Serious: Yes (Hospitalization)
  Sender: FDA-Public Use
  Company Number: US-BAYER-2012-008720

PATIENT
  Age: 28 Year
  Sex: Female
  Weight: 79.7 kg

DRUGS (3)
  1. DROSPIRENONE AND ETHINYL ESTRADIOL [Suspect]
     Indication: ACNE
  2. YAZ [Suspect]
     Indication: ACNE
  3. YASMIN [Suspect]
     Indication: ACNE

REACTIONS (6)
  - MYOCARDIAL INFARCTION [None]
  - INJURY [None]
  - CHEST PAIN [None]
  - HYPOAESTHESIA [None]
  - PAIN [None]
  - NAUSEA [None]
